FAERS Safety Report 10264926 (Version 3)
Quarter: 2014Q3

REPORT INFORMATION
  Report Type: Spontaneous
  Country: US (occurrence: US)
  Receive Date: 20140627
  Receipt Date: 20140829
  Transmission Date: 20150326
  Serious: Yes (Other)
  Sender: FDA-Public Use
  Company Number: US-PFIZER INC-2014175100

PATIENT
  Age: 87 Year
  Sex: Male

DRUGS (3)
  1. XALATAN [Suspect]
     Active Substance: LATANOPROST
     Dosage: UNK
     Dates: end: 201405
  2. COMBIVENT [Suspect]
     Active Substance: ALBUTEROL SULFATE\IPRATROPIUM BROMIDE
     Indication: GLAUCOMA
     Dosage: UNK
  3. XALATAN [Suspect]
     Active Substance: LATANOPROST
     Indication: GLAUCOMA
     Dosage: UNK

REACTIONS (2)
  - Cataract [Unknown]
  - Glaucoma [Unknown]

NARRATIVE: CASE EVENT DATE: 2014
